FAERS Safety Report 9996126 (Version 1)
Quarter: 2014Q1

REPORT INFORMATION
  Report Type: Spontaneous
  Country: US (occurrence: None)
  Receive Date: 20140218
  Receipt Date: 20140218
  Transmission Date: 20141002
  Serious: Yes (Other)
  Sender: FDA-Public Use
  Company Number: 1000050569

PATIENT
  Age: 47 Year
  Sex: Female

DRUGS (4)
  1. VIIBRYD [Suspect]
     Indication: DEPRESSION
     Route: 048
     Dates: start: 2013, end: 20131023
  2. BUPROPION (BUPROPION) [Concomitant]
  3. PRAVASTATIN (PRAVASTATIN) [Concomitant]
  4. ALPRAZOLAM (ALPRAZOLAM) [Concomitant]

REACTIONS (4)
  - Vertigo [None]
  - Nausea [None]
  - Crying [None]
  - Agitation [None]
